FAERS Safety Report 8344633-9 (Version None)
Quarter: 2012Q2

REPORT INFORMATION
  Report Type: 
  Country: None (occurrence: None)
  Receive Date: 20120508
  Receipt Date: 20120507
  Transmission Date: 20120825
  Serious: Yes (Death)
  Sender: FDA-Public Use
  Company Number: IT-ROCHE-1066075

PATIENT
  Sex: Female

DRUGS (1)
  1. ROCEPHIN [Suspect]
     Indication: BRONCHITIS
     Dosage: 1 GR/3.5 ML
     Route: 030
     Dates: start: 20120423, end: 20120423

REACTIONS (1)
  - CARDIO-RESPIRATORY ARREST [None]
